FAERS Safety Report 7607519-0 (Version None)
Quarter: 2011Q3

REPORT INFORMATION
  Report Type: 
  Country: None (occurrence: None)
  Receive Date: 20110713
  Receipt Date: 20110701
  Transmission Date: 20111222
  Serious: Yes (Hospitalization)
  Sender: FDA-Public Use
  Company Number: FR-RB-030181-11

PATIENT
  Sex: Male

DRUGS (1)
  1. SUBUTEX [Suspect]
     Indication: DRUG DEPENDENCE
     Dosage: OTHER DOSING DETAILS UNKNOWN
     Route: 042
     Dates: start: 20010101

REACTIONS (3)
  - INTENTIONAL DRUG MISUSE [None]
  - ULCER [None]
  - SCAR [None]
